FAERS Safety Report 15030582 (Version 1)
Quarter: 2018Q2

REPORT INFORMATION
  Report Type: Spontaneous
  Country: US (occurrence: US)
  Receive Date: 20180619
  Receipt Date: 20180619
  Transmission Date: 20180711
  Serious: No
  Sender: FDA-Public Use
  Company Number: US-PFIZER INC-2018240524

PATIENT
  Age: 17 Year
  Sex: Male

DRUGS (33)
  1. BETAMETHASONE DIPROPIONATE. [Concomitant]
     Active Substance: BETAMETHASONE DIPROPIONATE
     Indication: SCAR
     Dosage: UNK UNK, 2X/DAY (1 APPLICATOR, TOPICAL, BID, APPLY TO SCARS ON THE TRUNK BID MON-FRI, # 15 G)
     Route: 061
  2. DIPHENHYDRAMINE. [Concomitant]
     Active Substance: DIPHENHYDRAMINE
     Indication: NAUSEA
     Dosage: 25 MG, AS NEEDED (Q6H, PRN AS NEEDED)
     Route: 048
  3. GABAPENTIN. [Concomitant]
     Active Substance: GABAPENTIN
     Dosage: 24 ML, 3X/DAY
     Route: 048
  4. IBUPROFEN. [Concomitant]
     Active Substance: IBUPROFEN
     Dosage: 20 ML, 3X/DAY
     Route: 048
  5. HEPARIN FLUSH [Concomitant]
     Active Substance: HEPARIN SODIUM
     Dosage: 3 ML, AS NEEDED (PICC, Q6H, PRN)
     Route: 042
  6. BISACODYL. [Concomitant]
     Active Substance: BISACODYL
     Indication: CONSTIPATION
     Dosage: 5 MG, AS NEEDED (1 TABLET, PO, QDAY, AS NEEDED )
     Route: 048
  7. LEVOTHYROXINE SODIUM. [Suspect]
     Active Substance: LEVOTHYROXINE SODIUM
     Indication: THYROXINE FREE DECREASED
  8. PREVACID [Concomitant]
     Active Substance: LANSOPRAZOLE
     Dosage: 30 MG, 2X/DAY (, INSTR. TAKE EACH MORNING; BEFORE EATING AND BEFORE BED)
     Route: 048
  9. BUDESONIDE. [Concomitant]
     Active Substance: BUDESONIDE
     Indication: EOSINOPHILIC OESOPHAGITIS
     Dosage: 2 MG, DAILY (MIX 4 RESPULES WITH 20 PACKETS OF SPLENDA AND TAKE PO DAILY)
     Route: 048
  10. DIPHENHYDRAMINE. [Concomitant]
     Active Substance: DIPHENHYDRAMINE
     Indication: VOMITING
  11. TESTOSTERONE CIPIONATE [Suspect]
     Active Substance: TESTOSTERONE
     Indication: SECONDARY HYPOGONADISM
     Dosage: 50 MG, MONTHLY(Q 28 DAY)
     Route: 030
     Dates: start: 20170823
  12. FLUDROCORTISONE [Suspect]
     Active Substance: FLUDROCORTISONE
     Indication: ADRENOCORTICOTROPIC HORMONE DEFICIENCY
     Dosage: 0.1 MG, DAILY(QDAY/WITH NORMAL SODIUM)
     Route: 048
  13. TRANSDERM SCOP [Concomitant]
     Active Substance: SCOPOLAMINE
     Indication: NAUSEA
     Dosage: 1.5 MG, AS NEEDED (Q3DAY PRN)
     Route: 062
  14. HYDROCORTISONE. [Concomitant]
     Active Substance: HYDROCORTISONE
     Indication: STRESS
     Dosage: 5 MG, UNK (MODERATE STRESS: 3 TABLETS TID FOR SEVERE STRESS: 4 TABLETS QID)
     Route: 048
  15. INDOMETHACIN. [Concomitant]
     Active Substance: INDOMETHACIN
     Indication: ARTHRITIS
     Dosage: 50 MG, 3X/DAY
     Route: 048
  16. LEVOTHYROXINE SODIUM. [Suspect]
     Active Substance: LEVOTHYROXINE SODIUM
     Indication: TRI-IODOTHYRONINE DECREASED
  17. TRANSDERM SCOP [Concomitant]
     Active Substance: SCOPOLAMINE
     Indication: VOMITING
  18. CLOMIPRAMINE [Concomitant]
     Active Substance: CLOMIPRAMINE
     Dosage: 25 MG, UNK (1 CAPSULE PO Q HS FOR FOUR DAYS  THEN 2 CAPSULES PO Q HS FOR FOUR DAYS THEN 3 CAPSULES)
     Route: 048
  19. KETOCONAZOLE. [Concomitant]
     Active Substance: KETOCONAZOLE
     Indication: SKIN DISORDER
     Dosage: UNK UNK, 2X/WEEK (LEAVE IN FOR 5 MIN BEFORE WASHING OFF)
     Route: 061
  20. SOLU-CORTEF [Concomitant]
     Active Substance: HYDROCORTISONE SODIUM SUCCINATE
     Dosage: 100 MG, AS NEEDED (PRN)
     Route: 030
  21. FLUOCINOLONE [Concomitant]
     Active Substance: FLUOCINOLONE
     Indication: SKIN DISORDER
     Dosage: UNK UNK, AS NEEDED (QHS, PRN AS DIRECTED, APPLY TO AFFECTED AREAS ON THE SCALP QHS MON-FRI)
     Route: 061
  22. LOPERAMIDE [Concomitant]
     Active Substance: LOPERAMIDE
     Dosage: 1 MG, DAILY (1 MG= 0.5 TABLET)
     Route: 048
  23. LORAZEPAM. [Concomitant]
     Active Substance: LORAZEPAM
     Indication: VOMITING
  24. LEVOTHYROXINE SODIUM. [Suspect]
     Active Substance: LEVOTHYROXINE SODIUM
     Indication: HYPOTHYROIDISM
  25. ZOFRAN [Concomitant]
     Active Substance: ONDANSETRON HYDROCHLORIDE
     Indication: NAUSEA
     Dosage: 10 ML, AS NEEDED (8 MG = 10 ML, PO, TID, USE AS NEEDED)
     Route: 048
  26. GRANISETRON [Concomitant]
     Active Substance: GRANISETRON
     Indication: NAUSEA
     Dosage: 1 MG, AS NEEDED (, BID, PRN )
     Route: 048
  27. GRANISETRON [Concomitant]
     Active Substance: GRANISETRON
     Indication: VOMITING
  28. LORAZEPAM. [Concomitant]
     Active Substance: LORAZEPAM
     Indication: NAUSEA
     Dosage: 1 MG, AS NEEDED ()
     Route: 048
  29. LEVOTHYROXINE SODIUM. [Suspect]
     Active Substance: LEVOTHYROXINE SODIUM
     Indication: THYROID STIMULATING HORMONE DEFICIENCY
     Dosage: 50 UG, 1X/DAY(/AM DAILY/ Q DAY)
     Route: 048
  30. FLUDROCORTISONE [Suspect]
     Active Substance: FLUDROCORTISONE
     Indication: ADRENAL INSUFFICIENCY
  31. CHOLECALCIFEROL [Concomitant]
     Active Substance: CHOLECALCIFEROL
     Dosage: 2000 IU, DAILY (QDAY)
     Route: 048
  32. HYDROCORTISONE. [Concomitant]
     Active Substance: HYDROCORTISONE
     Dosage: UNK ((10 MG/M2/DAY)
  33. HYDROCORTISONE. [Concomitant]
     Active Substance: HYDROCORTISONE
     Dosage: 17.5 MG, DAILY

REACTIONS (10)
  - Vomiting [Unknown]
  - Red blood cell count decreased [Unknown]
  - Mean cell volume increased [Unknown]
  - Red cell distribution width decreased [Unknown]
  - Hypotension [Unknown]
  - Blood alkaline phosphatase increased [Unknown]
  - Blood creatinine decreased [Unknown]
  - Blood phosphorus increased [Unknown]
  - Diarrhoea [Unknown]
  - Fatigue [Unknown]

NARRATIVE: CASE EVENT DATE: 20170929
